FAERS Safety Report 11235704 (Version 2)
Quarter: 2015Q3

REPORT INFORMATION
  Report Type: Report from Study
  Country: CA (occurrence: CA)
  Receive Date: 20150702
  Receipt Date: 20150724
  Transmission Date: 20151125
  Serious: Yes (Hospitalization)
  Sender: FDA-Public Use
  Company Number: CA-PFIZER INC-2015162163

PATIENT
  Age: 67 Year
  Sex: Female
  Weight: 65 kg

DRUGS (12)
  1. EX-LAX REGULAR STRENGTH STIMULANT LAXATIVE [Concomitant]
     Active Substance: SENNOSIDES
     Indication: CONSTIPATION
     Dosage: 15 MG, AS NEEDED
     Route: 048
     Dates: start: 20150413
  2. DOXYCYCLINE. [Concomitant]
     Active Substance: DOXYCYCLINE
     Indication: PNEUMONIA
     Dosage: 100 MG, 2X/DAY
     Route: 048
     Dates: start: 20150409, end: 20150421
  3. PALBOCICLIB [Suspect]
     Active Substance: PALBOCICLIB
     Indication: BREAST CANCER
     Dosage: 125 MG, ONCE DAILY 3 WEEKS ON / 1 WEEK OFF EVERY 28 DAYS CYCLE
     Route: 048
     Dates: start: 20140213, end: 20150501
  4. ZOMIG [Concomitant]
     Active Substance: ZOLMITRIPTAN
     Indication: MIGRAINE
     Dosage: 2.5 MG, AS NEEDED
     Route: 048
     Dates: start: 200703
  5. IMOVANE [Concomitant]
     Active Substance: ZOPICLONE
     Indication: INSOMNIA
     Dosage: 7.5 MG, AS NEEDED AT BEDTIME
     Route: 048
     Dates: start: 201406
  6. SYNTHROID [Concomitant]
     Active Substance: LEVOTHYROXINE SODIUM
     Indication: HYPOTHYROIDISM
     Dosage: 0.075 MG, ONCE DAILY
     Route: 048
     Dates: start: 201208
  7. ZANTAC [Concomitant]
     Active Substance: RANITIDINE HYDROCHLORIDE
     Indication: DYSPEPSIA
     Dosage: 300 MG, TWICE DAILY
     Route: 048
     Dates: start: 20140217
  8. CEFTRIAXONE. [Concomitant]
     Active Substance: CEFTRIAXONE
     Indication: PNEUMONIA
     Dosage: 2 G, EVERY 24 HOURS
     Route: 042
     Dates: start: 20150422, end: 20150428
  9. DIPHENHYDRAMINE HCL/HYDROCORTISONE/NYSTATIN [Concomitant]
     Indication: MUCOSAL INFLAMMATION
     Dosage: 15-30 ML; 5 TIMES DAILY
     Route: 048
     Dates: start: 20140221
  10. RESTORALAX [Concomitant]
     Active Substance: POLYETHYLENE GLYCOL 3350
     Indication: CONSTIPATION
     Dosage: 1 TABLESPOON, TWICE DAILY
     Route: 048
     Dates: start: 20150420, end: 20150510
  11. GRAVOL [Concomitant]
     Active Substance: DIMENHYDRINATE
     Indication: NAUSEA
     Dosage: 50 MG, AS NEEDED EVERY 4-6 HOURS
     Route: 048
     Dates: start: 20150410
  12. LETROZOLE. [Suspect]
     Active Substance: LETROZOLE
     Indication: BREAST CANCER
     Dosage: 2.5 MG, ONCE DAILY
     Route: 048
     Dates: start: 20140213

REACTIONS (2)
  - Constipation [Recovered/Resolved]
  - Large intestinal obstruction [Recovered/Resolved]

NARRATIVE: CASE EVENT DATE: 20150423
